FAERS Safety Report 13519605 (Version 2)
Quarter: 2017Q2

REPORT INFORMATION
  Report Type: Spontaneous
  Country: US (occurrence: US)
  Receive Date: 20170505
  Receipt Date: 20170526
  Transmission Date: 20170830
  Serious: Yes (Death, Other)
  Sender: FDA-Public Use
  Company Number: US-BAUSCH-BL-2017-012424

PATIENT
  Sex: Male
  Weight: 81.72 kg

DRUGS (1)
  1. XIFAXAN [Suspect]
     Active Substance: RIFAXIMIN
     Indication: AMNESIA
     Route: 065
     Dates: start: 20170221

REACTIONS (4)
  - Liver disorder [Fatal]
  - Renal failure [Not Recovered/Not Resolved]
  - Off label use [Not Recovered/Not Resolved]
  - Atrioventricular block [Not Recovered/Not Resolved]
